FAERS Safety Report 8415425-7 (Version None)
Quarter: 2012Q2

REPORT INFORMATION
  Report Type: 
  Country: None (occurrence: None)
  Receive Date: 20120530
  Receipt Date: 20120516
  Transmission Date: 20120825
  Serious: Yes (Death)
  Sender: FDA-Public Use
  Company Number: DKLU1080335

PATIENT
  Age: 28 Month
  Sex: Female

DRUGS (4)
  1. VITAMIN B6 [Concomitant]
  2. SABRIL [Suspect]
     Indication: INFANTILE SPASMS
     Dosage: 13.5 ML, 2 1N 1 D, ORAL
     Route: 048
     Dates: start: 20101122
  3. TOPAMAX [Concomitant]
  4. KEPPRA [Concomitant]

REACTIONS (1)
  - DEATH [None]
